FAERS Safety Report 5676219-9 (Version None)
Quarter: 2008Q1

REPORT INFORMATION
  Report Type: 
  Country: None (occurrence: None)
  Receive Date: 20080321
  Receipt Date: 20080310
  Transmission Date: 20080703
  Serious: Yes (Hospitalization)
  Sender: FDA-Public Use
  Company Number: US-PFIZER INC-2007100561

PATIENT
  Sex: Female
  Weight: 61 kg

DRUGS (17)
  1. SUTENT [Suspect]
     Indication: NEOPLASM MALIGNANT
     Route: 048
     Dates: start: 20070905, end: 20071128
  2. OXALIPLATIN [Suspect]
     Indication: NEOPLASM MALIGNANT
     Route: 042
     Dates: start: 20070905, end: 20071114
  3. FLUOROURACIL [Suspect]
     Indication: NEOPLASM MALIGNANT
     Route: 042
     Dates: start: 20070905, end: 20071114
  4. LEUCOVORIN CALCIUM [Suspect]
     Indication: NEOPLASM MALIGNANT
     Route: 042
     Dates: start: 20070905, end: 20071114
  5. TYLENOL (CAPLET) [Concomitant]
     Route: 048
  6. NEXIUM [Concomitant]
     Route: 048
     Dates: start: 20071102
  7. HYZAAR [Concomitant]
     Dosage: TEXT:100/12.5MG
     Route: 048
     Dates: start: 20070505
  8. NORVASC [Concomitant]
     Route: 048
     Dates: start: 20071031
  9. GELCLAIR [Concomitant]
     Dosage: TEXT:1 PACKET
     Route: 048
     Dates: start: 20070927
  10. MAGIC MOUTHWASH [Concomitant]
     Dosage: FREQ:TID, QAC, PRN
     Route: 048
     Dates: start: 20070925
  11. OXYCODONE HCL [Concomitant]
     Indication: PAIN
     Route: 048
     Dates: start: 20070919
  12. URSODIOL [Concomitant]
     Route: 048
     Dates: start: 20070811
  13. COMPAZINE [Concomitant]
     Route: 048
     Dates: start: 20070905
  14. CALCIUM W/MAGNESIUM [Concomitant]
     Route: 048
     Dates: start: 19870101
  15. VITAMIN CAP [Concomitant]
     Dosage: TEXT:1 TAB
     Route: 048
     Dates: start: 19500101
  16. ATENOLOL [Concomitant]
     Route: 048
     Dates: start: 20030101
  17. SYNTHROID [Concomitant]
     Route: 048
     Dates: start: 20070301

REACTIONS (1)
  - HEPATIC INFECTION BACTERIAL [None]
